FAERS Safety Report 4636831-2 (Version None)
Quarter: 2005Q2

REPORT INFORMATION
  Report Type: 
  Country: None (occurrence: None)
  Receive Date: 20050414
  Receipt Date: 20050404
  Transmission Date: 20051028
  Serious: Yes (Hospitalization)
  Sender: FDA-Public Use
  Company Number: 2005047174

PATIENT
  Age: 80 Year
  Sex: Female
  Weight: 53.978 kg

DRUGS (7)
  1. XALATAN [Suspect]
     Indication: GLAUCOMA
     Dosage: 1 DROP (1 DROP, 1 IN 1 D), OPHTHALMIC
     Route: 047
     Dates: start: 19980312
  2. LIPITOR [Suspect]
     Indication: BLOOD CHOLESTEROL INCREASED
     Dosage: UNK (10 MG); ORAL
     Route: 048
     Dates: start: 20040101, end: 20040101
  3. ZOCOR [Suspect]
     Indication: BLOOD CHOLESTEROL INCREASED
     Dosage: ORAL
     Route: 048
     Dates: start: 19750101, end: 20041201
  4. AMLODIPINE BESYLATE [Concomitant]
  5. FAMOTIDINE [Concomitant]
  6. EZETIMIBE [Concomitant]
  7. CLAVULIN (AMOXICILLIN TRIHYDRATE, CALVULANATE POTASSIUM) [Concomitant]

REACTIONS (5)
  - BLOOD CHOLESTEROL INCREASED [None]
  - INTERVERTEBRAL DISC PROTRUSION [None]
  - MUSCLE SPASMS [None]
  - PHARMACEUTICAL PRODUCT COMPLAINT [None]
  - SENSORY LOSS [None]
